FAERS Safety Report 24607742 (Version 1)
Quarter: 2024Q4

REPORT INFORMATION
  Report Type: Spontaneous
  Country: US (occurrence: US)
  Receive Date: 20241112
  Receipt Date: 20241112
  Transmission Date: 20250115
  Serious: Yes (Other)
  Sender: ALEXION PHARMACEUTICALS
  Company Number: US-ASTRAZENECA-202410USA013157US

PATIENT
  Age: 66 Year
  Weight: 85.73 kg

DRUGS (54)
  1. LYNPARZA [Suspect]
     Active Substance: OLAPARIB
  2. LYNPARZA [Suspect]
     Active Substance: OLAPARIB
  3. LYNPARZA [Suspect]
     Active Substance: OLAPARIB
  4. LYNPARZA [Suspect]
     Active Substance: OLAPARIB
  5. VUDALIMAB [Suspect]
     Active Substance: VUDALIMAB
     Indication: Adenocarcinoma
     Dosage: 10 MICROGRAM/KILOGRAM, Q2W
  6. VUDALIMAB [Suspect]
     Active Substance: VUDALIMAB
     Dosage: 10 MICROGRAM/KILOGRAM, Q2W
  7. VUDALIMAB [Suspect]
     Active Substance: VUDALIMAB
     Dosage: 10 MICROGRAM/KILOGRAM, Q2W
  8. VUDALIMAB [Suspect]
     Active Substance: VUDALIMAB
     Dosage: 10 MICROGRAM/KILOGRAM, Q2W
  9. VUDALIMAB [Suspect]
     Active Substance: VUDALIMAB
     Dosage: 10 MICROGRAM/KILOGRAM, Q2W
  10. VUDALIMAB [Suspect]
     Active Substance: VUDALIMAB
     Dosage: 10 MICROGRAM/KILOGRAM, Q2W
  11. VUDALIMAB [Suspect]
     Active Substance: VUDALIMAB
     Dosage: 10 MICROGRAM/KILOGRAM, Q2W
  12. VUDALIMAB [Suspect]
     Active Substance: VUDALIMAB
     Dosage: 10 MICROGRAM/KILOGRAM, Q2W
  13. VUDALIMAB [Suspect]
     Active Substance: VUDALIMAB
     Dosage: 10 MICROGRAM/KILOGRAM, Q2W
  14. VUDALIMAB [Suspect]
     Active Substance: VUDALIMAB
     Dosage: 10 MICROGRAM/KILOGRAM, Q2W
  15. VUDALIMAB [Suspect]
     Active Substance: VUDALIMAB
     Dosage: 10 MICROGRAM/KILOGRAM, Q2W
  16. VUDALIMAB [Suspect]
     Active Substance: VUDALIMAB
     Dosage: 10 MICROGRAM/KILOGRAM, Q2W
  17. DOCETAXEL [Suspect]
     Active Substance: DOCETAXEL
     Indication: Adenocarcinoma
     Dosage: 75 MICROGRAM/SQ. METER, Q3W
  18. DOCETAXEL [Suspect]
     Active Substance: DOCETAXEL
     Dosage: 75 MICROGRAM/SQ. METER, Q3W
  19. DOCETAXEL [Suspect]
     Active Substance: DOCETAXEL
     Dosage: 75 MICROGRAM/SQ. METER, Q3W
  20. DOCETAXEL [Suspect]
     Active Substance: DOCETAXEL
     Dosage: 75 MICROGRAM/SQ. METER, Q3W
  21. DOCETAXEL [Suspect]
     Active Substance: DOCETAXEL
     Dosage: 75 MICROGRAM/SQ. METER, Q3W
  22. DOCETAXEL [Suspect]
     Active Substance: DOCETAXEL
     Dosage: 75 MICROGRAM/SQ. METER, Q3W
  23. DOCETAXEL [Suspect]
     Active Substance: DOCETAXEL
     Dosage: 75 MICROGRAM/SQ. METER, Q3W
  24. DOCETAXEL [Suspect]
     Active Substance: DOCETAXEL
     Dosage: 75 MICROGRAM/SQ. METER, Q3W
  25. DOCETAXEL [Suspect]
     Active Substance: DOCETAXEL
     Dosage: 75 MICROGRAM/SQ. METER, Q3W
  26. DOCETAXEL [Suspect]
     Active Substance: DOCETAXEL
     Dosage: 75 MICROGRAM/SQ. METER, Q3W
  27. DOCETAXEL [Suspect]
     Active Substance: DOCETAXEL
     Dosage: 75 MICROGRAM/SQ. METER, Q3W
  28. DOCETAXEL [Suspect]
     Active Substance: DOCETAXEL
     Dosage: 75 MICROGRAM/SQ. METER, Q3W
  29. DOCETAXEL [Suspect]
     Active Substance: DOCETAXEL
     Dosage: 75 MICROGRAM/SQ. METER, Q3W
  30. DOCETAXEL [Suspect]
     Active Substance: DOCETAXEL
     Dosage: 75 MICROGRAM/SQ. METER, Q3W
  31. DOCETAXEL [Suspect]
     Active Substance: DOCETAXEL
     Dosage: 75 MICROGRAM/SQ. METER, Q3W
  32. DOCETAXEL [Suspect]
     Active Substance: DOCETAXEL
     Dosage: 75 MICROGRAM/SQ. METER, Q3W
  33. DOCETAXEL [Suspect]
     Active Substance: DOCETAXEL
     Dosage: 75 MICROGRAM/SQ. METER, Q3W
  34. DOCETAXEL [Suspect]
     Active Substance: DOCETAXEL
     Dosage: 75 MICROGRAM/SQ. METER, Q3W
  35. DOCETAXEL [Suspect]
     Active Substance: DOCETAXEL
     Dosage: 75 MICROGRAM/SQ. METER, Q3W
  36. DOCETAXEL [Suspect]
     Active Substance: DOCETAXEL
     Dosage: 75 MICROGRAM/SQ. METER, Q3W
  37. DULOXETINE [Concomitant]
     Active Substance: DULOXETINE
     Dosage: UNK
  38. DULOXETINE [Concomitant]
     Active Substance: DULOXETINE
     Dosage: UNK
     Route: 065
  39. GABAPENTIN [Concomitant]
     Active Substance: GABAPENTIN
     Dosage: UNK
  40. GABAPENTIN [Concomitant]
     Active Substance: GABAPENTIN
     Dosage: UNK
     Route: 065
  41. DECADRON [Concomitant]
     Active Substance: DEXAMETHASONE
     Dosage: UNK
  42. REVATIO [Concomitant]
     Active Substance: SILDENAFIL CITRATE
     Dosage: UNK
  43. REVATIO [Concomitant]
     Active Substance: SILDENAFIL CITRATE
     Dosage: UNK
     Route: 065
  44. TAMSULOSIN [Concomitant]
     Active Substance: TAMSULOSIN
     Dosage: UNK
  45. TAMSULOSIN [Concomitant]
     Active Substance: TAMSULOSIN
     Dosage: UNK
     Route: 065
  46. ACETAMINOPHEN [Concomitant]
     Active Substance: ACETAMINOPHEN
     Dosage: UNK
  47. OXYCODONE [Concomitant]
     Active Substance: OXYCODONE
     Dosage: UNK
  48. ADVIL [Concomitant]
     Active Substance: IBUPROFEN
     Dosage: UNK
  49. ZOFRAN [Concomitant]
     Active Substance: ONDANSETRON HYDROCHLORIDE
     Dosage: UNK
  50. CALCIUM CARBONATE\VITAMIN D [Concomitant]
     Active Substance: CALCIUM CARBONATE\VITAMIN D
     Dosage: UNK
  51. DOCONEXENT [Concomitant]
     Active Substance: DOCONEXENT
     Dosage: UNK
  52. SODIUM CHLORIDE [Concomitant]
     Active Substance: SODIUM CHLORIDE
     Dosage: UNK
  53. KENALOG [Concomitant]
     Active Substance: TRIAMCINOLONE ACETONIDE
     Dosage: UNK
  54. DICLOFENAC [Concomitant]
     Active Substance: DICLOFENAC
     Dosage: UNK

REACTIONS (11)
  - Neutrophil count decreased [Unknown]
  - Hypokalaemia [Unknown]
  - Myalgia [Unknown]
  - Blood lactate dehydrogenase increased [Unknown]
  - Pruritus [Unknown]
  - White blood cell count decreased [Unknown]
  - Platelet count decreased [Unknown]
  - Peripheral sensory neuropathy [Unknown]
  - Peroneal nerve palsy [Unknown]
  - Cellulitis [Unknown]
  - Infusion related reaction [Unknown]
